FAERS Safety Report 9307889 (Version 33)
Quarter: 2015Q4

REPORT INFORMATION
  Report Type: Report from Study
  Country: CA (occurrence: CA)
  Receive Date: 20130524
  Receipt Date: 20151211
  Transmission Date: 20160305
  Serious: Yes (Hospitalization, Other)
  Sender: FDA-Public Use
  Company Number: CA-ROCHE-1202210

PATIENT
  Age: 58 Year
  Sex: Female
  Weight: 64 kg

DRUGS (30)
  1. RITUXAN [Suspect]
     Active Substance: RITUXIMAB
     Route: 042
     Dates: start: 20140904
  2. COUMADIN [Concomitant]
     Active Substance: WARFARIN SODIUM
  3. LOSEC [Suspect]
     Active Substance: OMEPRAZOLE
     Indication: PRODUCT USED FOR UNKNOWN INDICATION
     Route: 065
  4. ACTEMRA [Suspect]
     Active Substance: TOCILIZUMAB
     Indication: RHEUMATOID ARTHRITIS
     Route: 042
     Dates: start: 20130312
  5. RITUXAN [Suspect]
     Active Substance: RITUXIMAB
     Indication: RHEUMATOID ARTHRITIS
     Dosage: DAY 1, 15
     Route: 042
     Dates: start: 20140815
  6. METHOTREXATE [Suspect]
     Active Substance: METHOTREXATE
     Indication: PRODUCT USED FOR UNKNOWN INDICATION
     Route: 065
     Dates: end: 2014
  7. RITUXAN [Suspect]
     Active Substance: RITUXIMAB
     Route: 042
     Dates: start: 20150409
  8. STATEX (CANADA) [Suspect]
     Active Substance: MORPHINE SULFATE
     Indication: PRODUCT USED FOR UNKNOWN INDICATION
     Route: 065
  9. XALATAN [Concomitant]
     Active Substance: LATANOPROST
  10. DIPHENHYDRAMINE HCL [Concomitant]
     Active Substance: DIPHENHYDRAMINE HYDROCHLORIDE
     Route: 042
     Dates: start: 20140815
  11. ELAVIL [Concomitant]
     Active Substance: AMITRIPTYLINE HYDROCHLORIDE
  12. CYMBALTA [Concomitant]
     Active Substance: DULOXETINE HYDROCHLORIDE
  13. SYNTHROID [Concomitant]
     Active Substance: LEVOTHYROXINE SODIUM
  14. BETOPTIC [Concomitant]
     Active Substance: BETAXOLOL HYDROCHLORIDE
  15. RITUXAN [Suspect]
     Active Substance: RITUXIMAB
     Route: 042
     Dates: start: 20150423
  16. M-ESLON [Suspect]
     Active Substance: MORPHINE SULFATE
     Indication: PRODUCT USED FOR UNKNOWN INDICATION
     Route: 065
  17. DOCUSATE [Concomitant]
     Active Substance: DOCUSATE
  18. ARAVA [Concomitant]
     Active Substance: LEFLUNOMIDE
  19. EPIPEN [Concomitant]
     Active Substance: EPINEPHRINE
  20. BENADRYL [Concomitant]
     Active Substance: DIPHENHYDRAMINE HYDROCHLORIDE
     Route: 042
     Dates: start: 20140815
  21. ACTEMRA [Suspect]
     Active Substance: TOCILIZUMAB
     Route: 042
     Dates: start: 20130424, end: 20130611
  22. PANTOLOC [Suspect]
     Active Substance: PANTOPRAZOLE SODIUM
     Indication: PRODUCT USED FOR UNKNOWN INDICATION
     Route: 065
  23. NEXIUM [Suspect]
     Active Substance: ESOMEPRAZOLE MAGNESIUM
     Indication: PRODUCT USED FOR UNKNOWN INDICATION
     Route: 065
  24. AZOPT [Concomitant]
     Active Substance: BRINZOLAMIDE
  25. ACETAMINOPHEN. [Concomitant]
     Active Substance: ACETAMINOPHEN
     Route: 042
     Dates: start: 20140815
  26. CYCLOBENZAPRINE [Suspect]
     Active Substance: CYCLOBENZAPRINE
     Indication: PRODUCT USED FOR UNKNOWN INDICATION
     Route: 065
  27. BETOPTIC [Concomitant]
     Active Substance: BETAXOLOL HYDROCHLORIDE
  28. OXYNEO [Concomitant]
     Active Substance: OXYCODONE
  29. SENOKOT [Concomitant]
     Active Substance: SENNOSIDES
  30. VENTOLIN [Concomitant]
     Active Substance: ALBUTEROL SULFATE

REACTIONS (52)
  - Coma [Recovered/Resolved]
  - Headache [Recovered/Resolved]
  - Hypoaesthesia [Recovering/Resolving]
  - Asthenia [Recovering/Resolving]
  - Poor venous access [Unknown]
  - Abdominal pain upper [Unknown]
  - Back pain [Unknown]
  - Fatigue [Recovering/Resolving]
  - Anxiety [Unknown]
  - Arthralgia [Unknown]
  - Dyspepsia [Unknown]
  - Arthritis [Not Recovered/Not Resolved]
  - Abdominal pain [Recovered/Resolved]
  - Heart rate decreased [Not Recovered/Not Resolved]
  - Dyspepsia [Unknown]
  - Arthralgia [Not Recovered/Not Resolved]
  - Pyrexia [Recovered/Resolved]
  - Thrombosis [Not Recovered/Not Resolved]
  - Hot flush [Recovering/Resolving]
  - Syncope [Recovering/Resolving]
  - Rhinorrhoea [Recovering/Resolving]
  - Pain in extremity [Not Recovered/Not Resolved]
  - Phlebitis [Not Recovered/Not Resolved]
  - Middle insomnia [Unknown]
  - Nasal discharge discolouration [Not Recovered/Not Resolved]
  - Fatigue [Not Recovered/Not Resolved]
  - Infusion related reaction [Unknown]
  - Fibromyalgia [Unknown]
  - Bronchitis [Recovering/Resolving]
  - Abdominal pain upper [Unknown]
  - Catheter site pain [Recovered/Resolved]
  - Ulcer [Not Recovered/Not Resolved]
  - Nausea [Recovered/Resolved]
  - Vomiting [Recovered/Resolved]
  - Panic attack [Unknown]
  - Blindness [Recovering/Resolving]
  - Pain [Unknown]
  - Epigastric discomfort [Not Recovered/Not Resolved]
  - Tremor [Not Recovered/Not Resolved]
  - Blood pressure decreased [Unknown]
  - Swelling [Unknown]
  - Throat irritation [Recovering/Resolving]
  - Encephalitis [Unknown]
  - Dyspnoea [Recovered/Resolved]
  - Fall [Unknown]
  - Chills [Recovering/Resolving]
  - Injection site pain [Recovered/Resolved]
  - Eye irritation [Recovering/Resolving]
  - Sinusitis [Recovering/Resolving]
  - Device failure [Not Recovered/Not Resolved]
  - Diarrhoea [Unknown]
  - Malaise [Unknown]

NARRATIVE: CASE EVENT DATE: 20130312
